FAERS Safety Report 4764633-5 (Version None)
Quarter: 2005Q3

REPORT INFORMATION
  Report Type: 
  Country: None (occurrence: None)
  Receive Date: 20050909
  Receipt Date: 20050902
  Transmission Date: 20060218
  Serious: Yes (Death)
  Sender: FDA-Public Use
  Company Number: PA-GLAXOSMITHKLINE-A0573374A

PATIENT
  Age: 33 Year
  Sex: Male

DRUGS (1)
  1. PAXIL [Suspect]
     Indication: DEPRESSION
     Route: 048
     Dates: start: 20021201, end: 20030828

REACTIONS (16)
  - AGITATION [None]
  - AKATHISIA [None]
  - ANXIETY [None]
  - COMPLETED SUICIDE [None]
  - DEPENDENCE [None]
  - DRUG WITHDRAWAL SYNDROME [None]
  - DYSARTHRIA [None]
  - HEADACHE [None]
  - IRRITABILITY [None]
  - LIBIDO DECREASED [None]
  - MOOD SWINGS [None]
  - PANIC ATTACK [None]
  - PARAESTHESIA [None]
  - PARANOIA [None]
  - SOMNOLENCE [None]
  - SUICIDAL IDEATION [None]
